FAERS Safety Report 10425693 (Version 2)
Quarter: 2014Q3

REPORT INFORMATION
  Report Type: Spontaneous
  Country: DE (occurrence: DE)
  Receive Date: 20140903
  Receipt Date: 20140903
  Transmission Date: 20150326
  Serious: Yes (Congenital Anomaly, Other)
  Sender: FDA-Public Use
  Company Number: DE-AUROBINDO-AUR-APL-2014-08271

PATIENT
  Age: 1 Day
  Sex: Male
  Weight: 3.5 kg

DRUGS (7)
  1. METFORMIN [Suspect]
     Active Substance: METFORMIN HYDROCHLORIDE
     Indication: POLYCYSTIC OVARIES
     Dosage: 1000 MG, TWO TIMES A DAY
     Route: 064
     Dates: start: 20121005, end: 20130627
  2. COLECALCIFEROL [Concomitant]
     Active Substance: CHOLECALCIFEROL
     Indication: VITAMIN D DEFICIENCY
     Dosage: UNK
     Route: 065
  3. FEMIBION [Suspect]
     Active Substance: VITAMINS
     Indication: PROPHYLAXIS OF NEURAL TUBE DEFECT
     Dosage: 0.8 MG, DAILY
     Route: 064
     Dates: start: 20121005, end: 20130327
  4. RENNIE                             /06879101/ [Suspect]
     Active Substance: CALCIUM CARBONATE\MAGNESIUM CARBONATE
     Indication: DYSPEPSIA
     Dosage: 3400MG/400MG
     Route: 064
     Dates: end: 20130627
  5. METFORMIN [Suspect]
     Active Substance: METFORMIN HYDROCHLORIDE
     Indication: INSULIN RESISTANCE
  6. VIGANTOLETTEN [Suspect]
     Active Substance: CHOLECALCIFEROL
     Indication: VITAMIN D DEFICIENCY
     Dosage: 1000 IU, ONCE A DAY
     Route: 064
     Dates: start: 20121005, end: 20130627
  7. INSULIN BASAL [Suspect]
     Active Substance: INSULIN NOS
     Indication: GESTATIONAL DIABETES
     Dosage: 16 IU, DAILY
     Route: 064
     Dates: start: 20130327, end: 20130327

REACTIONS (4)
  - Foetal exposure during pregnancy [Unknown]
  - Polycystic ovaries [Unknown]
  - Eyelid ptosis congenital [Unknown]
  - Off label use [Unknown]

NARRATIVE: CASE EVENT DATE: 20130628
